FAERS Safety Report 6526190 (Version 3)
Quarter: 2012Q4

REPORT INFORMATION
  Report Type: 
  Country: US (occurrence: US)
  Receive Date: 20080114
  Receipt Date: 20121019
  Transmission Date: 20130627
  Serious: Yes (Other)
  Sender: FDA-Public Use
  Company Number: US-ASTRAZENECA-2008UW00217

PATIENT
  Age: 44 Year
  Sex: Male
  Weight: 83.9 kg

DRUGS (5)
  1. SEROQUEL [Suspect]
     Indication: SCHIZOPHRENIA
     Route: 048
     Dates: start: 1999, end: 2007
  2. SEROQUEL [Suspect]
     Indication: SCHIZOPHRENIA
     Route: 048
     Dates: start: 20070813
  3. ABILIFY [Concomitant]
     Dates: start: 2004
  4. RISPERDAL [Concomitant]
     Dates: start: 1997
  5. ZYPREXA [Concomitant]
     Dates: start: 1995

REACTIONS (7)
  - Myocardial infarction [Unknown]
  - Diabetic coma [Unknown]
  - Pancreatitis [Unknown]
  - Diabetes mellitus [Unknown]
  - Blood cholesterol increased [Unknown]
  - Blood triglycerides increased [Unknown]
  - Gastritis [Unknown]
